FAERS Safety Report 13498289 (Version 1)
Quarter: 2017Q2

REPORT INFORMATION
  Report Type: Spontaneous
  Country: US (occurrence: US)
  Receive Date: 20170429
  Receipt Date: 20170429
  Transmission Date: 20170830
  Serious: No
  Sender: FDA-Public Use
  Company Number: ALCN2017US002988

PATIENT
  Sex: Female
  Weight: 57.14 kg

DRUGS (3)
  1. CYCLOGYL [Concomitant]
     Active Substance: CYCLOPENTOLATE HYDROCHLORIDE
     Indication: PRODUCT USED FOR UNKNOWN INDICATION
     Dosage: UNK UNK, TID
     Route: 065
  2. FUROSEMIDE. [Concomitant]
     Active Substance: FUROSEMIDE
     Indication: PRODUCT USED FOR UNKNOWN INDICATION
     Dosage: 20 MG, QW3
     Route: 048
  3. PREDNISOLONE SCHEIN [Suspect]
     Active Substance: PREDNISOLONE
     Indication: HERPES ZOSTER
     Dosage: UNK, QHS
     Route: 047
     Dates: start: 201501

REACTIONS (7)
  - Lacrimation increased [Unknown]
  - Eye irritation [Unknown]
  - Medication residue present [Unknown]
  - Drug ineffective [Unknown]
  - Corneal scar [Unknown]
  - Product quality issue [Unknown]
  - Vision blurred [Unknown]
